FAERS Safety Report 12815145 (Version 1)
Quarter: 2016Q4

REPORT INFORMATION
  Report Type: Spontaneous
  Country: US (occurrence: US)
  Receive Date: 20161005
  Receipt Date: 20161005
  Transmission Date: 20170207
  Serious: No
  Sender: FDA-Public Use
  Company Number: US-AMGEN-USASP2016002698

PATIENT
  Age: 66 Year
  Sex: Female

DRUGS (1)
  1. PROLIA [Suspect]
     Active Substance: DENOSUMAB
     Indication: PRODUCT USED FOR UNKNOWN INDICATION
     Dosage: UNK
     Route: 065
     Dates: start: 20160108

REACTIONS (10)
  - Off label use [Unknown]
  - Pain in extremity [Recovered/Resolved]
  - Nausea [Unknown]
  - Pain [Recovered/Resolved]
  - Blood cholesterol increased [Unknown]
  - Pain in jaw [Recovered/Resolved]
  - Pruritus [Unknown]
  - Gastric disorder [Unknown]
  - Bone density abnormal [Unknown]
  - Erythema [Unknown]

NARRATIVE: CASE EVENT DATE: 201601
